FAERS Safety Report 6069969-6 (Version None)
Quarter: 2009Q1

REPORT INFORMATION
  Report Type: 
  Country: None (occurrence: None)
  Receive Date: 20090209
  Receipt Date: 20080227
  Transmission Date: 20090719
  Serious: No
  Sender: FDA-Public Use
  Company Number: US-BAYER-200912636NA

PATIENT
  Age: 27 Year
  Sex: Female
  Weight: 58 kg

DRUGS (3)
  1. YAZ [Suspect]
     Indication: CONTRACEPTION
  2. MAXALT [Concomitant]
     Indication: MIGRAINE
     Dosage: TOTAL DAILY DOSE: 1 DF
     Route: 048
     Dates: start: 19980101
  3. MULTI-VITAMIN [Concomitant]
     Indication: MEDICAL DIET
     Dosage: TOTAL DAILY DOSE: 1 DF
     Route: 048
     Dates: start: 20070101

REACTIONS (1)
  - PREGNANCY ON ORAL CONTRACEPTIVE [None]
